FAERS Safety Report 9844692 (Version 1)
Quarter: 2014Q1

REPORT INFORMATION
  Report Type: Spontaneous
  Country: US (occurrence: None)
  Receive Date: 20140123
  Receipt Date: 20140123
  Transmission Date: 20141002
  Serious: Yes (Disabling)
  Sender: FDA-Public Use
  Company Number: None

PATIENT
  Age: 51 Year
  Sex: Female
  Weight: 40.37 kg

DRUGS (2)
  1. DULCOLAX [Suspect]
     Indication: COLONOSCOPY
     Dates: start: 20130715, end: 20130715
  2. CLEARLAX [Suspect]
     Indication: COLONOSCOPY
     Dates: start: 20130715, end: 20130715

REACTIONS (19)
  - Dizziness [None]
  - Hypoaesthesia [None]
  - Feeling cold [None]
  - Dysphagia [None]
  - Paraesthesia [None]
  - Flank pain [None]
  - Dehydration [None]
  - Dyspepsia [None]
  - Oesophageal pain [None]
  - Nausea [None]
  - Feeling hot [None]
  - Pallor [None]
  - Abdominal pain upper [None]
  - Diarrhoea [None]
  - Migraine [None]
  - Vomiting [None]
  - Pain [None]
  - Eating disorder [None]
  - Weight decreased [None]
